FAERS Safety Report 6770934 (Version 3)
Quarter: 2019Q4

REPORT INFORMATION
  Report Type: Spontaneous
  Country: FR (occurrence: FR)
  Receive Date: 20080925
  Receipt Date: 20191023
  Transmission Date: 20200122
  Serious: Yes (Life-Threatening, Hospitalization, Other)
  Sender: FDA-Public Use
  Company Number: FR-ELI_LILLY_AND_COMPANY-FR200805005269

PATIENT
  Age: 66 Year
  Sex: Male
  Weight: 81 kg

DRUGS (9)
  1. DEFIBROTIDE [Concomitant]
     Active Substance: DEFIBROTIDE (BOVINE)
     Indication: PRODUCT USED FOR UNKNOWN INDICATION
     Dosage: UNK, UNKNOWN
     Route: 065
  2. GEMZAR [Suspect]
     Active Substance: GEMCITABINE HYDROCHLORIDE
     Indication: TRANSITIONAL CELL CARCINOMA
     Dosage: 1000 MG/M2 (2000 MG/M2 INFUSION) DAI AND DAY 8 OF A  21 DAY CYCLE, UNKNOWN
     Route: 042
     Dates: start: 20080317, end: 20080507
  3. PERIDYS [Concomitant]
     Active Substance: DOMPERIDONE
     Indication: PROPHYLAXIS OF NAUSEA AND VOMITING
     Dosage: 15 MG, 3/D
     Route: 048
     Dates: start: 20080507, end: 20080508
  4. INEXIUM [ESOMEPRAZOLE MAGNESIUM] [Concomitant]
     Active Substance: ESOMEPRAZOLE MAGNESIUM
     Indication: PRODUCT USED FOR UNKNOWN INDICATION
     Dosage: UNK, UNKNOWN
     Route: 065
  5. VOGALENE [Concomitant]
     Active Substance: METOPIMAZINE
     Indication: PROPHYLAXIS OF NAUSEA AND VOMITING
     Dosage: 3 MG, DAILY (1/D)
     Route: 048
     Dates: start: 20080430, end: 20080506
  6. SOLU-MEDROL [Concomitant]
     Active Substance: METHYLPREDNISOLONE SODIUM SUCCINATE
     Indication: PROPHYLAXIS OF NAUSEA AND VOMITING
     Dosage: 40 MG, DAILY (1/D)
     Route: 042
     Dates: start: 20080507, end: 20080507
  7. ZOPHREN [ONDANSETRON HYDROCHLORIDE] [Concomitant]
     Active Substance: ONDANSETRON
     Indication: PROPHYLAXIS OF NAUSEA AND VOMITING
     Dosage: 8 MG, DAILY (1/D)
     Route: 042
     Dates: start: 20080507, end: 20080507
  8. TRANXENE [Concomitant]
     Active Substance: CLORAZEPATE DIPOTASSIUM
     Indication: PROPHYLAXIS OF NAUSEA AND VOMITING
     Dosage: 10 MG, DAILY (1/D)
     Route: 042
     Dates: start: 20080507, end: 20080507
  9. ELOXATIN [Concomitant]
     Active Substance: OXALIPLATIN
     Indication: TRANSITIONAL CELL CARCINOMA
     Dosage: 100MG/M2 (200 MG INFUSION ON DAY 1), ON DAY 1 OF A 21 DAY CYCLE
     Route: 042
     Dates: start: 20080317, end: 20080429

REACTIONS (11)
  - Hepatic fibrosis [Unknown]
  - Cholecystitis [Recovered/Resolved]
  - Acute hepatic failure [Recovered/Resolved]
  - Inflammation [Recovered/Resolved]
  - Retrograde portal vein flow [Recovered/Resolved]
  - Hepatorenal syndrome [Recovered/Resolved with Sequelae]
  - Ascites [Recovered/Resolved with Sequelae]
  - Microcytic anaemia [Recovered/Resolved]
  - Acute kidney injury [Recovered/Resolved]
  - Thrombocytopenia [Recovered/Resolved]
  - Venoocclusive disease [Recovered/Resolved]

NARRATIVE: CASE EVENT DATE: 2008
